FAERS Safety Report 9373064 (Version 2)
Quarter: 2013Q4

REPORT INFORMATION
  Report Type: Spontaneous
  Country: DK (occurrence: AT)
  Receive Date: 20130627
  Receipt Date: 20131202
  Transmission Date: 20140711
  Serious: No
  Sender: FDA-Public Use
  Company Number: AT-FRI-1000046249

PATIENT
  Sex: Male

DRUGS (3)
  1. ESCITALOPRAM [Suspect]
     Indication: PRODUCT USED FOR UNKNOWN INDICATION
     Dosage: 10 MG
     Dates: start: 2012, end: 201303
  2. ESCITALOPRAM [Suspect]
     Dosage: 20 MG
     Dates: start: 201303
  3. ESCITALOPRAM [Suspect]
     Dosage: 2.5 MG

REACTIONS (3)
  - Oligospermia [Recovering/Resolving]
  - Asthenospermia [Recovering/Resolving]
  - Teratospermia [Recovering/Resolving]
